FAERS Safety Report 13884088 (Version 1)
Quarter: 2017Q3

REPORT INFORMATION
  Report Type: Spontaneous
  Country: FR (occurrence: FR)
  Receive Date: 20170821
  Receipt Date: 20170821
  Transmission Date: 20171127
  Serious: Yes (Hospitalization)
  Sender: FDA-Public Use
  Company Number: FR-ROCHE-1977885

PATIENT
  Age: 74 Year
  Sex: Male
  Weight: 80 kg

DRUGS (24)
  1. INEXIUM [Suspect]
     Active Substance: ESOMEPRAZOLE
     Indication: GASTROOESOPHAGEAL REFLUX DISEASE
     Route: 048
     Dates: start: 20170707, end: 20170728
  2. TAHOR [Concomitant]
     Active Substance: ATORVASTATIN CALCIUM
  3. PARACETAMOL [Concomitant]
     Active Substance: ACETAMINOPHEN
  4. DEXAMETHASONE. [Concomitant]
     Active Substance: DEXAMETHASONE
     Dosage: ON DAY 1 TO DAY 4
     Route: 065
     Dates: start: 20170630
  5. ARACYTINE [Concomitant]
     Active Substance: CYTARABINE
     Dosage: ON DAY ONE
     Route: 065
     Dates: start: 20170630
  6. BACTRIM [Suspect]
     Active Substance: SULFAMETHOXAZOLE\TRIMETHOPRIM
     Indication: PROPHYLAXIS
     Route: 048
     Dates: end: 20170726
  7. AMOXICILLIN. [Concomitant]
     Active Substance: AMOXICILLIN
     Route: 065
     Dates: start: 20170706, end: 20170712
  8. CYTARABINE. [Concomitant]
     Active Substance: CYTARABINE
  9. OXALIPLATIN. [Concomitant]
     Active Substance: OXALIPLATIN
     Route: 065
     Dates: start: 20170630
  10. MABTHERA [Suspect]
     Active Substance: RITUXIMAB
     Indication: NON-HODGKIN^S LYMPHOMA
     Route: 042
     Dates: start: 20170630
  11. ATARAX [Concomitant]
     Active Substance: HYDROXYZINE HYDROCHLORIDE
  12. AUGMENTIN [Concomitant]
     Active Substance: AMOXICILLIN\CLAVULANATE POTASSIUM
     Indication: BRONCHITIS HAEMOPHILUS
     Route: 065
     Dates: start: 20170705
  13. RITUXIMAB. [Concomitant]
     Active Substance: RITUXIMAB
     Dosage: 12 CYCLES OF MAINTENANCE WITH RITUXIMAB UNTIL 2010
     Route: 065
     Dates: end: 2010
  14. RITUXIMAB. [Concomitant]
     Active Substance: RITUXIMAB
     Dosage: ON DAY ONE, 30/JUN (YEAR NOT SPECIFIED)
     Route: 065
  15. SPECIAFOLDINE [Concomitant]
     Active Substance: FOLIC ACID
  16. WELLVONE [Concomitant]
     Active Substance: ATOVAQUONE
     Route: 065
     Dates: start: 20170726
  17. RITUXIMAB. [Concomitant]
     Active Substance: RITUXIMAB
     Dosage: 6 CYCLES OF R-CHOP FROM NOV-2014 TO MAR-2015
     Route: 065
     Dates: start: 201411, end: 201503
  18. TOPALGIC (FRANCE) [Concomitant]
     Active Substance: TRAMADOL
  19. PRIMPERAN [Concomitant]
     Active Substance: METOCLOPRAMIDE HYDROCHLORIDE
  20. RITUXIMAB. [Concomitant]
     Active Substance: RITUXIMAB
     Dosage: 8 CYCLES
     Route: 065
     Dates: start: 2007
  21. ZELITREX [Concomitant]
     Active Substance: VALACYCLOVIR HYDROCHLORIDE
  22. XANAX [Concomitant]
     Active Substance: ALPRAZOLAM
  23. TAREG [Concomitant]
     Active Substance: VALSARTAN
  24. ZOPHREN [Concomitant]
     Active Substance: ONDANSETRON

REACTIONS (1)
  - Agranulocytosis [Recovered/Resolved]

NARRATIVE: CASE EVENT DATE: 20170725
